FAERS Safety Report 8738529 (Version 2)
Quarter: 2012Q4

REPORT INFORMATION
  Report Type: Report from Study
  Country: IT (occurrence: IT)
  Receive Date: 20120823
  Receipt Date: 20120828
  Transmission Date: 20130627
  Serious: Yes (Death)
  Sender: FDA-Public Use
  Company Number: IT-PFIZER INC-2012204368

PATIENT
  Age: 64 Year
  Sex: Female
  Weight: 50 kg

DRUGS (2)
  1. CRIZOTINIB [Suspect]
     Indication: NON-SMALL CELL LUNG CANCER
     Dosage: 250 mg, 2x/day
     Route: 048
     Dates: start: 20120619, end: 20120815
  2. TACHIDOL [Concomitant]
     Indication: PAIN
     Dosage: 530 mg, as needed
     Route: 048
     Dates: start: 20120415

REACTIONS (2)
  - Arrhythmia [Fatal]
  - Pulmonary embolism [Fatal]
